FAERS Safety Report 17354576 (Version 1)
Quarter: 2020Q1

REPORT INFORMATION
  Report Type: Spontaneous
  Country: US (occurrence: US)
  Receive Date: 20200130
  Receipt Date: 20200130
  Transmission Date: 20200409
  Serious: Yes (Other)
  Sender: FDA-Public Use
  Company Number: None

PATIENT
  Age: 67 Year
  Sex: Male
  Weight: 112.5 kg

DRUGS (7)
  1. ERGOCALCIFEROL. [Suspect]
     Active Substance: ERGOCALCIFEROL
     Indication: LOWER LIMB FRACTURE
     Dosage: ?          QUANTITY:1 CAPSULE(S);OTHER FREQUENCY:WEEKLY X 12 WEEKS;?
     Route: 048
     Dates: start: 20191112, end: 20200128
  2. ERGOCALCIFEROL. [Suspect]
     Active Substance: ERGOCALCIFEROL
     Indication: VITAMIN D DECREASED
     Dosage: ?          QUANTITY:1 CAPSULE(S);OTHER FREQUENCY:WEEKLY X 12 WEEKS;?
     Route: 048
     Dates: start: 20191112, end: 20200128
  3. METOPROLOL. [Concomitant]
     Active Substance: METOPROLOL
  4. VALSARTAN. [Concomitant]
     Active Substance: VALSARTAN
  5. DICLOFENAC [Concomitant]
     Active Substance: DICLOFENAC
  6. CENTRUM SILVER [Concomitant]
     Active Substance: MINERALS\VITAMINS
  7. HCTZ [Concomitant]
     Active Substance: HYDROCHLOROTHIAZIDE

REACTIONS (3)
  - Pericardial disease [None]
  - Chest pain [None]
  - Fat necrosis [None]

NARRATIVE: CASE EVENT DATE: 20200126
